FAERS Safety Report 8552315-3 (Version None)
Quarter: 2012Q3

REPORT INFORMATION
  Report Type: 
  Country: None (occurrence: None)
  Receive Date: 20120718
  Receipt Date: 20120403
  Transmission Date: 20120928
  Serious: Yes (Other)
  Sender: FDA-Public Use
  Company Number: 2012000076

PATIENT
  Age: 65 Year
  Sex: Male

DRUGS (5)
  1. NEBIVOLOL HCL [Concomitant]
  2. AMLODIPINE [Concomitant]
  3. ACEON [Suspect]
     Indication: HYPERTENSION
     Dosage: 10 MG, QD, ORAL
     Route: 048
     Dates: start: 20080101, end: 20100101
  4. NOLIPREL (INDAPAMIDE, PERINDOPRIL ERBUMINE) [Suspect]
     Indication: HYPERTENSION
     Dosage: 0.625/2 MG, QD, ORAL
     Route: 048
     Dates: start: 20100101, end: 20111201
  5. NOLIPREL A BI-FORTE () [Suspect]
     Indication: HYPERTENSION
     Dosage: 10/2.5 MG, QD, ORAL
     Route: 048
     Dates: start: 20111201, end: 20111201

REACTIONS (4)
  - DRUG INEFFECTIVE [None]
  - PRURITUS [None]
  - URTICARIA [None]
  - BLOOD PRESSURE INADEQUATELY CONTROLLED [None]
